FAERS Safety Report 17274313 (Version 3)
Quarter: 2020Q1

REPORT INFORMATION
  Report Type: Report from Study
  Country: CA (occurrence: CA)
  Receive Date: 20200115
  Receipt Date: 20200226
  Transmission Date: 20200409
  Serious: Yes (Other)
  Sender: FDA-Public Use
  Company Number: CA-NALPROPION PHARMACEUTICALS INC.-2020-009419

PATIENT

DRUGS (8)
  1. CONTRAVE [Suspect]
     Active Substance: BUPROPION HYDROCHLORIDE\NALTREXONE HYDROCHLORIDE
     Dosage: 2 TABLET IN MORNING AND 1 IN AFTERNOON
     Route: 048
     Dates: start: 20191116, end: 20191122
  2. CONTRAVE [Suspect]
     Active Substance: BUPROPION HYDROCHLORIDE\NALTREXONE HYDROCHLORIDE
     Dosage: 1 TABLET IN MORNING AND 1 IN AFTERNOON
     Route: 048
     Dates: start: 20200118, end: 20200120
  3. CONTRAVE [Suspect]
     Active Substance: BUPROPION HYDROCHLORIDE\NALTREXONE HYDROCHLORIDE
     Dosage: 1 TABLET IN MORNING AND 1 IN AFTERNOON
     Route: 048
     Dates: start: 20191109, end: 20191115
  4. CONTRAVE [Suspect]
     Active Substance: BUPROPION HYDROCHLORIDE\NALTREXONE HYDROCHLORIDE
     Dosage: 2 TABLET IN MORNING AND 2 IN AFTERNOON
     Route: 048
     Dates: start: 20191123, end: 20200114
  5. CONTRAVE [Suspect]
     Active Substance: BUPROPION HYDROCHLORIDE\NALTREXONE HYDROCHLORIDE
     Dosage: 1 TABLET IN MORNING
     Route: 048
     Dates: start: 20200121, end: 20200123
  6. CONTRAVE [Suspect]
     Active Substance: BUPROPION HYDROCHLORIDE\NALTREXONE HYDROCHLORIDE
     Indication: WEIGHT CONTROL
     Dosage: 1 TABLET IN MORNING
     Route: 048
     Dates: start: 20191102, end: 20191108
  7. CONTRAVE [Suspect]
     Active Substance: BUPROPION HYDROCHLORIDE\NALTREXONE HYDROCHLORIDE
     Dosage: 2 TABLET IN MORNING AND 1 IN AFTERNOON
     Route: 048
     Dates: start: 20200115, end: 20200117
  8. CIPRALEX [Concomitant]
     Active Substance: ESCITALOPRAM OXALATE
     Indication: ANXIETY
     Dosage: 1 IN 1 D
     Route: 048

REACTIONS (7)
  - Hyperhidrosis [Unknown]
  - Loss of personal independence in daily activities [Unknown]
  - Dizziness [Not Recovered/Not Resolved]
  - Contraindicated product administered [Unknown]
  - Thrombosis [Unknown]
  - Nausea [Unknown]
  - Condition aggravated [Not Recovered/Not Resolved]

NARRATIVE: CASE EVENT DATE: 2019
